FAERS Safety Report 5041002-4 (Version None)
Quarter: 2006Q3

REPORT INFORMATION
  Report Type: 
  Country: None (occurrence: None)
  Receive Date: 20060703
  Receipt Date: 20050908
  Transmission Date: 20061208
  Serious: No
  Sender: FDA-Public Use
  Company Number: US-GLAXOSMITHKLINE-A0573490A

PATIENT
  Age: 59 Year
  Sex: Female

DRUGS (8)
  1. PARNATE [Suspect]
     Indication: DEPRESSION
     Route: 048
  2. EVISTA [Concomitant]
  3. SYNTHROID [Concomitant]
  4. GEODON [Concomitant]
  5. SONATA [Concomitant]
  6. ATIVAN [Concomitant]
  7. MOBIC [Concomitant]
  8. HYOSCINE HBR HYT [Concomitant]

REACTIONS (3)
  - BLOOD PRESSURE INCREASED [None]
  - HEADACHE [None]
  - INSOMNIA [None]
